FAERS Safety Report 5290663-3 (Version None)
Quarter: 2007Q2

REPORT INFORMATION
  Report Type: 
  Country: None (occurrence: None)
  Receive Date: 20070405
  Receipt Date: 20070405
  Transmission Date: 20071010
  Serious: Yes (Hospitalization)
  Sender: FDA-Public Use
  Company Number: None

PATIENT
  Sex: Male
  Weight: 133.4 kg

DRUGS (12)
  1. AMIODARONE HCL [Suspect]
     Indication: ARRHYTHMIA
     Dosage: 200MG  PO  3 X 1 DAY
     Route: 048
     Dates: end: 20060909
  2. SIROLIMUS [Suspect]
     Indication: IMMUNOSUPPRESSION
     Dosage: 3 MG PO DAILY
     Route: 048
     Dates: end: 20060909
  3. TACROLIMUS [Concomitant]
  4. DEXAMETHASONE [Concomitant]
  5. AZITHROMYCIN [Concomitant]
  6. CEFEPIME [Concomitant]
  7. ISOSORBIDE DINITRATE [Concomitant]
  8. HYDRALAZINE HCL [Concomitant]
  9. ASPIRIN [Concomitant]
  10. PANTOPRAZOLE [Concomitant]
  11. ALBUTEROL [Concomitant]
  12. IPRATROPIUM BROMIDE [Concomitant]

REACTIONS (1)
  - PULMONARY ALVEOLAR HAEMORRHAGE [None]
